FAERS Safety Report 9608336 (Version 3)
Quarter: 2013Q4

REPORT INFORMATION
  Report Type: Spontaneous
  Country: US (occurrence: US)
  Receive Date: 20131009
  Receipt Date: 20131122
  Transmission Date: 20140711
  Serious: Yes (Other)
  Sender: FDA-Public Use
  Company Number: US-PFIZER INC-2013286018

PATIENT
  Age: 5 Year
  Sex: Female

DRUGS (3)
  1. RAPAMUNE [Suspect]
     Indication: RENAL TRANSPLANT
     Dosage: 0.5 ML, (1 MG/ 1ML SUSPENSION) EVERY 12 HOURS
     Route: 048
     Dates: start: 201308, end: 20130907
  2. CELLCEPT [Concomitant]
     Dosage: UNK
  3. MIRALAX [Concomitant]
     Dosage: UNK

REACTIONS (2)
  - Drug level increased [Recovered/Resolved]
  - Product quality issue [Unknown]
